FAERS Safety Report 8439230-0 (Version None)
Quarter: 2012Q2

REPORT INFORMATION
  Report Type: 
  Country: None (occurrence: None)
  Receive Date: 20120615
  Receipt Date: 20120609
  Transmission Date: 20120825
  Serious: Yes (Other)
  Sender: FDA-Public Use
  Company Number: PHHY2012MX050468

PATIENT
  Sex: Female

DRUGS (5)
  1. PRAMIPEXOLE DIHYDROCHLORIDE [Concomitant]
     Dosage: 1 DF, PER DAY
     Dates: start: 20100101
  2. RISPERIDONE [Concomitant]
     Dosage: 1 DF, PER DAY
  3. EXELON [Suspect]
     Indication: DEMENTIA ALZHEIMER'S TYPE
     Dosage: 4.6 MG, PER DAY
     Route: 062
     Dates: start: 20080601
  4. GALANTAMINE HYDROBROMIDE [Concomitant]
     Dosage: UNK UKN, UNK
  5. ASPIRIN [Concomitant]
     Dosage: UNK UKN, UNK
     Dates: start: 20120301

REACTIONS (4)
  - DECREASED APPETITE [None]
  - LOSS OF CONSCIOUSNESS [None]
  - HYPOPHAGIA [None]
  - BRAIN HYPOXIA [None]
